FAERS Safety Report 21127877 (Version 1)
Quarter: 2022Q3

REPORT INFORMATION
  Report Type: Spontaneous
  Country: US (occurrence: US)
  Receive Date: 20220725
  Receipt Date: 20220725
  Transmission Date: 20221026
  Serious: No
  Sender: FDA-Public Use
  Company Number: US-ABBVIE-22K-163-4293455-00

PATIENT
  Sex: Female

DRUGS (2)
  1. SYNTHROID [Suspect]
     Active Substance: LEVOTHYROXINE SODIUM
     Indication: Product used for unknown indication
     Dosage: MONDAYS, WEDNESDAYS AND FRIDAYS
     Route: 048
  2. SYNTHROID [Suspect]
     Active Substance: LEVOTHYROXINE SODIUM
     Indication: Product used for unknown indication
     Dosage: TUESDAYS, THURSDAYS, SATURDAYS AND SUNDAYS
     Route: 048

REACTIONS (3)
  - Feeling jittery [Unknown]
  - Pain in extremity [Unknown]
  - Product administration error [Unknown]
